FAERS Safety Report 4293498-3 (Version None)
Quarter: 2004Q1

REPORT INFORMATION
  Report Type: 
  Country: None (occurrence: None)
  Receive Date: 20040210
  Receipt Date: 20040128
  Transmission Date: 20041129
  Serious: Yes (Hospitalization)
  Sender: FDA-Public Use
  Company Number: D01200400281

PATIENT

DRUGS (6)
  1. (FONDAPARINUX) - SOLUTION -  UNIT DOSE : UNKNOWN [Suspect]
     Indication: ANGINA UNSTABLE
     Dosage: 2.5 MG QD SUBCUTANEOUS
     Route: 058
     Dates: start: 20040115, end: 20040116
  2. (FONDAPARINUX) - SOLUTION -  UNIT DOSE : UNKNOWN [Suspect]
     Indication: MYOCARDIAL INFARCTION
     Dosage: 2.5 MG QD SUBCUTANEOUS
     Route: 058
     Dates: start: 20040115, end: 20040116
  3. ASPIRIN [Concomitant]
  4. AGGRASTAT [Concomitant]
  5. LOPRESSOR [Concomitant]
  6. HEPARIN [Concomitant]

REACTIONS (3)
  - CORONARY ARTERY DISSECTION [None]
  - CORONARY ARTERY THROMBOSIS [None]
  - DRUG INEFFECTIVE [None]
